FAERS Safety Report 11797830 (Version 1)
Quarter: 2015Q4

REPORT INFORMATION
  Report Type: Spontaneous
  Country: GB (occurrence: GB)
  Receive Date: 20151203
  Receipt Date: 20151203
  Transmission Date: 20160305
  Serious: Yes (Disabling)
  Sender: FDA-Public Use
  Company Number: GB-BANPHARM-20154467

PATIENT
  Age: 45 Year
  Sex: Male
  Weight: 89 kg

DRUGS (6)
  1. PARACETAMOL [Concomitant]
     Active Substance: ACETAMINOPHEN
  2. LACTULOSE. [Concomitant]
     Active Substance: LACTULOSE
  3. IBUPROFEN UNKNOWN PRODUCT [Suspect]
     Active Substance: IBUPROFEN
     Dates: start: 20151112
  4. CLOTRIMAZOLE. [Concomitant]
     Active Substance: CLOTRIMAZOLE
     Route: 060
  5. XARELTO [Concomitant]
     Active Substance: RIVAROXABAN
  6. BISOPROLOL [Concomitant]
     Active Substance: BISOPROLOL
     Dosage: DF 1, QD,

REACTIONS (1)
  - Haemorrhage [Not Recovered/Not Resolved]
